FAERS Safety Report 11098123 (Version 1)
Quarter: 2015Q2

REPORT INFORMATION
  Report Type: Spontaneous
  Country: US (occurrence: US)
  Receive Date: 20150507
  Receipt Date: 20150507
  Transmission Date: 20150821
  Serious: Yes (Hospitalization, Other)
  Sender: FDA-Public Use
  Company Number: US-BAUSCH-BL-2015-012428

PATIENT
  Age: 54 Year
  Sex: Female
  Weight: 64 kg

DRUGS (6)
  1. HYDROCODONE [Concomitant]
     Active Substance: HYDROCODONE
     Indication: PAIN
     Dosage: 10/325 MG AS NEEDED
     Route: 048
  2. ATIVAN [Suspect]
     Active Substance: LORAZEPAM
     Indication: ANXIETY
     Route: 042
     Dates: start: 201501
  3. XANAX [Suspect]
     Active Substance: ALPRAZOLAM
     Indication: ANXIETY
     Route: 048
  4. HUMIRA [Concomitant]
     Active Substance: ADALIMUMAB
     Indication: PRODUCT USED FOR UNKNOWN INDICATION
     Dosage: INJECTION EVERY OTHER TUESDAY
  5. ATIVAN [Suspect]
     Active Substance: LORAZEPAM
  6. XANAX [Suspect]
     Active Substance: ALPRAZOLAM
     Route: 048

REACTIONS (15)
  - Blood potassium abnormal [Unknown]
  - Emotional disorder [Unknown]
  - Intestinal resection [Unknown]
  - Large intestinal obstruction [Unknown]
  - Fluid intake reduced [Unknown]
  - Anaemia [Recovering/Resolving]
  - Drug ineffective [Unknown]
  - Dehydration [Unknown]
  - Oedematous kidney [Unknown]
  - Feeling abnormal [Unknown]
  - Renal failure [Unknown]
  - Cardiac arrest [Unknown]
  - Crying [Unknown]
  - Irritability [Unknown]
  - Nausea [Unknown]

NARRATIVE: CASE EVENT DATE: 20150225
